FAERS Safety Report 4365446-9 (Version None)
Quarter: 2004Q2

REPORT INFORMATION
  Report Type: 
  Country: None (occurrence: None)
  Receive Date: 20040525
  Receipt Date: 20040525
  Transmission Date: 20050107
  Serious: Yes (Death)
  Sender: FDA-Public Use
  Company Number: None

PATIENT
  Age: 40 Year
  Sex: Female
  Weight: 51.2565 kg

DRUGS (5)
  1. LEXAPRO [Suspect]
     Indication: DEPRESSION
     Dosage: 5 MG X 11 DAYS; 10 MG X 5 DAYS
     Dates: start: 20040126, end: 20040210
  2. LEXAPRO [Suspect]
     Indication: FATIGUE
     Dosage: 5 MG X 11 DAYS; 10 MG X 5 DAYS
     Dates: start: 20040126, end: 20040210
  3. PAXIL [Suspect]
     Indication: INSOMNIA
     Dosage: PAXIL 12.5 X 3 DAYS
     Dates: start: 20040121, end: 20040125
  4. .. [Concomitant]
  5. ELAVIL [Concomitant]

REACTIONS (5)
  - COMPLETED SUICIDE [None]
  - DEPRESSION [None]
  - FATIGUE [None]
  - INSOMNIA [None]
  - MOOD SWINGS [None]
